FAERS Safety Report 5707560-9 (Version None)
Quarter: 2008Q2

REPORT INFORMATION
  Report Type: 
  Country: None (occurrence: None)
  Receive Date: 20080416
  Receipt Date: 20080410
  Transmission Date: 20081010
  Serious: Yes (Disabling, Other)
  Sender: FDA-Public Use
  Company Number: JP-MERCK-0803USA04871

PATIENT
  Age: 68 Year
  Sex: Female

DRUGS (18)
  1. TRUSOPT [Suspect]
     Indication: GLAUCOMA
     Route: 047
     Dates: start: 20070528, end: 20071114
  2. TRUSOPT [Suspect]
     Route: 047
     Dates: start: 20070130, end: 20070527
  3. XALATAN [Suspect]
     Indication: GLAUCOMA
     Route: 047
     Dates: start: 20070129, end: 20070515
  4. DIAMOX SRC [Suspect]
     Indication: GLAUCOMA
     Route: 048
     Dates: start: 20070129, end: 20070130
  5. SANPILO [Suspect]
     Indication: GLAUCOMA
     Route: 047
     Dates: start: 20070410, end: 20070515
  6. OFLOXACIN [Suspect]
     Indication: CATARACT OPERATION
     Route: 047
     Dates: start: 20070508, end: 20070515
  7. OFLOXACIN [Suspect]
     Route: 047
     Dates: start: 20070516, end: 20070522
  8. DICLOD [Suspect]
     Indication: CATARACT OPERATION
     Route: 047
     Dates: start: 20070508, end: 20070515
  9. DICLOD [Suspect]
     Route: 047
     Dates: start: 20070516, end: 20070522
  10. LOXONIN [Suspect]
     Indication: ANALGESIA
     Route: 048
     Dates: start: 20070516, end: 20070516
  11. CRAVIT [Suspect]
     Indication: INFECTION PROPHYLAXIS
     Route: 047
     Dates: start: 20070517, end: 20070620
  12. FLUOROMETHOLONE [Suspect]
     Indication: INFLAMMATION
     Route: 047
     Dates: start: 20070517, end: 20070801
  13. BRONUCK [Suspect]
     Indication: INFLAMMATION
     Route: 047
     Dates: start: 20070517, end: 20070620
  14. CEFZON [Suspect]
     Indication: INFECTION PROPHYLAXIS
     Route: 048
     Dates: start: 20070517, end: 20070519
  15. CEFZON [Suspect]
     Route: 048
     Dates: start: 20070524, end: 20070526
  16. ASPARA K [Suspect]
     Indication: OCULAR HYPERTENSION
     Route: 048
     Dates: start: 20070524, end: 20070525
  17. MAXIPIME [Suspect]
     Indication: INFECTION PROPHYLAXIS
     Route: 042
     Dates: start: 20070516, end: 20070516
  18. MAXIPIME [Suspect]
     Route: 042
     Dates: start: 20070523, end: 20070523

REACTIONS (1)
  - ANOSMIA [None]
